FAERS Safety Report 8189029-8 (Version None)
Quarter: 2012Q1

REPORT INFORMATION
  Report Type: 
  Country: None (occurrence: None)
  Receive Date: 20120307
  Receipt Date: 20120229
  Transmission Date: 20120608
  Serious: No
  Sender: FDA-Public Use
  Company Number: US-BIOGENIDEC-2012BI007410

PATIENT
  Age: 33 Year
  Sex: Female

DRUGS (2)
  1. TYSABRI [Suspect]
     Indication: MULTIPLE SCLEROSIS
     Route: 042
     Dates: start: 20071207, end: 20110503
  2. TYSABRI [Suspect]
     Route: 042
     Dates: start: 20110822

REACTIONS (3)
  - ASTHENIA [None]
  - COGNITIVE DISORDER [None]
  - GAIT DISTURBANCE [None]
